FAERS Safety Report 9616479 (Version 1)
Quarter: 2013Q4

REPORT INFORMATION
  Report Type: Spontaneous
  Country: US (occurrence: None)
  Receive Date: 20131010
  Receipt Date: 20131010
  Transmission Date: 20140711
  Serious: Yes (Life-Threatening, Hospitalization, Disabling)
  Sender: FDA-Public Use
  Company Number: None

PATIENT
  Age: 59 Year
  Sex: Female
  Weight: 51.7 kg

DRUGS (1)
  1. RUXOLITINIB [Suspect]
     Indication: MYELOFIBROSIS
     Route: 048
     Dates: start: 20130601, end: 20130930

REACTIONS (3)
  - Sinusitis [None]
  - Necrosis [None]
  - Fungal infection [None]
